FAERS Safety Report 7189984-9 (Version None)
Quarter: 2010Q4

REPORT INFORMATION
  Report Type: 
  Country: None (occurrence: None)
  Receive Date: 20101223
  Receipt Date: 20101214
  Transmission Date: 20110411
  Serious: Yes (Hospitalization)
  Sender: FDA-Public Use
  Company Number: FR-JNJFOC-20101109126

PATIENT
  Age: 48 Year
  Sex: Female
  Weight: 68 kg

DRUGS (5)
  1. SIMPONI [Suspect]
     Indication: RHEUMATOID ARTHRITIS
     Route: 058
  2. SIMPONI [Suspect]
     Route: 058
  3. PARACETAMOL [Concomitant]
     Indication: INFLUENZA
     Route: 048
  4. KETOCONAZOLE [Concomitant]
     Indication: VULVOVAGINAL MYCOTIC INFECTION
  5. CICLOPIROX OLAMINE [Concomitant]
     Indication: VULVOVAGINAL MYCOTIC INFECTION
     Route: 003

REACTIONS (1)
  - URINARY TRACT INFECTION [None]
